FAERS Safety Report 5012925-7 (Version None)
Quarter: 2006Q2

REPORT INFORMATION
  Report Type: 
  Country: None (occurrence: None)
  Receive Date: 20060530
  Receipt Date: 20060519
  Transmission Date: 20061013
  Serious: Yes (Other)
  Sender: FDA-Public Use
  Company Number: PT-JNJFOC-20060502369

PATIENT
  Sex: Female
  Weight: 55 kg

DRUGS (1)
  1. TOPAMAX [Suspect]
     Indication: DRUG THERAPY
     Route: 048

REACTIONS (4)
  - BALANCE DISORDER [None]
  - DISORIENTATION [None]
  - OFF LABEL USE [None]
  - VISUAL DISTURBANCE [None]
